FAERS Safety Report 5969386-0 (Version None)
Quarter: 2008Q4

REPORT INFORMATION
  Report Type: 
  Country: None (occurrence: None)
  Receive Date: 20081126
  Receipt Date: 20081124
  Transmission Date: 20090506
  Serious: Yes (Hospitalization)
  Sender: FDA-Public Use
  Company Number: DE-WATSON-2008-05523

PATIENT
  Age: 45 Year
  Sex: Female

DRUGS (3)
  1. FERRLECIT [Suspect]
     Indication: ANAEMIA
     Dosage: 2 AMPOULES, UNKNOWN
     Route: 042
     Dates: start: 20080730, end: 20080730
  2. SODIUM CHLORIDE [Concomitant]
     Indication: DRUG USE FOR UNKNOWN INDICATION
     Dosage: 250 ML, UNK
     Route: 065
     Dates: start: 20080730, end: 20080730
  3. TRAMADOL HCL [Concomitant]
     Indication: DRUG USE FOR UNKNOWN INDICATION
     Dosage: UNK
     Route: 065

REACTIONS (4)
  - DYSPNOEA [None]
  - DYSSTASIA [None]
  - PARAESTHESIA [None]
  - URTICARIA [None]
